FAERS Safety Report 7926774-0 (Version None)
Quarter: 2011Q4

REPORT INFORMATION
  Report Type: 
  Country: None (occurrence: None)
  Receive Date: 20111118
  Receipt Date: 20111114
  Transmission Date: 20120403
  Serious: Yes (Hospitalization)
  Sender: FDA-Public Use
  Company Number: US-JNJFOC-20111004318

PATIENT
  Age: 46 Year
  Sex: Female
  Weight: 61.69 kg

DRUGS (4)
  1. PREDNISONE TAB [Concomitant]
  2. SIMPONI [Suspect]
     Indication: ANKYLOSING SPONDYLITIS
     Route: 058
     Dates: end: 20110926
  3. PREDNISONE TAB [Concomitant]
  4. METHOTREXATE [Concomitant]

REACTIONS (3)
  - NAUSEA [None]
  - VOMITING [None]
  - DIARRHOEA [None]
